FAERS Safety Report 17060011 (Version 1)
Quarter: 2019Q4

REPORT INFORMATION
  Report Type: Spontaneous
  Country: US (occurrence: US)
  Receive Date: 20191121
  Receipt Date: 20191121
  Transmission Date: 20200122
  Serious: No
  Sender: FDA-Public Use
  Company Number: US-NOVOPROD-678350

PATIENT
  Age: 64 Year
  Sex: Male

DRUGS (3)
  1. NOVOLOG [Suspect]
     Active Substance: INSULIN ASPART
     Indication: DIABETIC NEUROPATHY
  2. NOVOLOG [Suspect]
     Active Substance: INSULIN ASPART
     Indication: TYPE 2 DIABETES MELLITUS
     Dosage: DOSED ON A SLIDING SCALE
     Route: 058
     Dates: end: 201907
  3. NOVOLOG [Suspect]
     Active Substance: INSULIN ASPART
     Indication: HYPERGLYCAEMIA

REACTIONS (2)
  - Blood glucose increased [Unknown]
  - Drug intolerance [Unknown]

NARRATIVE: CASE EVENT DATE: 201907
